FAERS Safety Report 9055472 (Version 3)
Quarter: 2013Q1

REPORT INFORMATION
  Report Type: Spontaneous
  Country: JP (occurrence: JP)
  Receive Date: 20130206
  Receipt Date: 20130221
  Transmission Date: 20140127
  Serious: Yes (Hospitalization)
  Sender: FDA-Public Use
  Company Number: JP-ASTRAZENECA-2013SE07596

PATIENT
  Age: 25007 Day
  Sex: Female
  Weight: 51 kg

DRUGS (3)
  1. NEXIUM [Suspect]
     Indication: GASTROOESOPHAGEAL REFLUX DISEASE
     Route: 048
     Dates: start: 20121218, end: 20130129
  2. FLAVERIC [Concomitant]
     Indication: IDIOPATHIC PULMONARY FIBROSIS
     Route: 048
     Dates: start: 20120625
  3. MUCODYNE [Concomitant]
     Indication: IDIOPATHIC PULMONARY FIBROSIS
     Route: 048
     Dates: start: 20120625

REACTIONS (3)
  - Interstitial lung disease [Recovered/Resolved]
  - Vomiting [Unknown]
  - Rash [Recovered/Resolved]
